FAERS Safety Report 9272932 (Version 1)
Quarter: 2013Q2

REPORT INFORMATION
  Report Type: Spontaneous
  Country: US (occurrence: US)
  Receive Date: 20130506
  Receipt Date: 20130506
  Transmission Date: 20140414
  Serious: No
  Sender: FDA-Public Use
  Company Number: US-BAYER-2013-056638

PATIENT
  Sex: Female

DRUGS (8)
  1. ALEVE [Suspect]
     Indication: ARTHRITIS
     Dosage: 2 DF, QD
     Route: 048
  2. TAMOXIFEN [Concomitant]
  3. LOVASTATIN [Concomitant]
  4. MULTIVITAMINS [Concomitant]
  5. CALCIUM [Concomitant]
  6. VITAMIN B [Concomitant]
  7. VITAMIN D [Concomitant]
  8. VITAMIN E [Concomitant]

REACTIONS (1)
  - Incorrect drug administration duration [None]
